FAERS Safety Report 13244205 (Version 1)
Quarter: 2017Q1

REPORT INFORMATION
  Report Type: Spontaneous
  Country: US (occurrence: US)
  Receive Date: 20170216
  Receipt Date: 20170216
  Transmission Date: 20170428
  Serious: No
  Sender: FDA-Public Use
  Company Number: US-RELYPSA-RLY2017000304

PATIENT
  Sex: Male

DRUGS (9)
  1. CRANBERRY. [Concomitant]
     Active Substance: CRANBERRY
  2. NITROSTAT [Concomitant]
     Active Substance: NITROGLYCERIN
  3. VELTASSA [Suspect]
     Active Substance: PATIROMER
     Indication: HYPERKALAEMIA
     Dosage: 8.4 G, QD
     Route: 048
     Dates: start: 20160930
  4. CALCITRIOL. [Concomitant]
     Active Substance: CALCITRIOL
  5. COREG [Concomitant]
     Active Substance: CARVEDILOL
  6. LANTUS [Concomitant]
     Active Substance: INSULIN GLARGINE
  7. MEDROL [Concomitant]
     Active Substance: METHYLPREDNISOLONE
  8. ALLOPURINOL. [Concomitant]
     Active Substance: ALLOPURINOL
  9. HYDRALAZINE HCL [Concomitant]
     Active Substance: HYDRALAZINE HYDROCHLORIDE

REACTIONS (1)
  - Abdominal pain upper [Unknown]
